FAERS Safety Report 5889627-8 (Version None)
Quarter: 2008Q3

REPORT INFORMATION
  Report Type: 
  Country: None (occurrence: None)
  Receive Date: 20080919
  Receipt Date: 20080910
  Transmission Date: 20090109
  Serious: Yes (Hospitalization)
  Sender: FDA-Public Use
  Company Number: B0536624A

PATIENT
  Age: 69 Year
  Sex: Male

DRUGS (10)
  1. ZOPHREN [Suspect]
     Indication: PREMEDICATION
     Route: 042
     Dates: start: 20070401, end: 20071211
  2. DETICENE [Suspect]
     Route: 042
     Dates: start: 20070401, end: 20071211
  3. VELBE [Suspect]
     Route: 042
     Dates: start: 20070401, end: 20071211
  4. ADRIBLASTINE [Suspect]
     Route: 042
     Dates: start: 20070401, end: 20071211
  5. BLEOMYCINE [Suspect]
     Route: 042
     Dates: start: 20070401, end: 20071211
  6. SOLU-MEDROL [Suspect]
     Indication: PREMEDICATION
     Dosage: 120MG PER DAY
     Route: 042
     Dates: start: 20070401, end: 20071211
  7. PLITICAN [Suspect]
     Indication: PREMEDICATION
     Route: 042
     Dates: start: 20070401, end: 20071211
  8. CORTANCYL [Concomitant]
     Indication: DRUG USE FOR UNKNOWN INDICATION
     Route: 048
  9. ANAUSIN [Concomitant]
     Indication: DRUG USE FOR UNKNOWN INDICATION
     Route: 048
  10. POLARAMINE [Concomitant]
     Indication: DRUG USE FOR UNKNOWN INDICATION
     Route: 048

REACTIONS (1)
  - SCLERODERMA [None]
